FAERS Safety Report 16228473 (Version 2)
Quarter: 2019Q2

REPORT INFORMATION
  Report Type: Spontaneous
  Country: US (occurrence: US)
  Receive Date: 20190423
  Receipt Date: 20190502
  Transmission Date: 20190711
  Serious: No
  Sender: FDA-Public Use
  Company Number: US-TEVA-2019-US-1038072

PATIENT
  Sex: Female

DRUGS (1)
  1. TEVA DEXMETHYLPHENIDATE HYDROCHLORIDE [Suspect]
     Active Substance: DEXMETHYLPHENIDATE HYDROCHLORIDE
     Dates: start: 20190228

REACTIONS (2)
  - Palpitations [Unknown]
  - Wrong technique in product usage process [Unknown]
